FAERS Safety Report 12499986 (Version 1)
Quarter: 2016Q2

REPORT INFORMATION
  Report Type: Spontaneous
  Country: US (occurrence: None)
  Receive Date: 20160624
  Receipt Date: 20160624
  Transmission Date: 20160815
  Serious: Yes (Other)
  Sender: FDA-Public Use
  Company Number: None

PATIENT
  Age: 63 Year
  Sex: Female
  Weight: 65.77 kg

DRUGS (1)
  1. OMEPRAZOLE 40MG CAPSULES [Suspect]
     Active Substance: OMEPRAZOLE
     Indication: GASTROOESOPHAGEAL REFLUX DISEASE
     Route: 048
     Dates: start: 20160416, end: 20160420

REACTIONS (4)
  - Ageusia [None]
  - Dizziness [None]
  - Anosmia [None]
  - Impaired work ability [None]

NARRATIVE: CASE EVENT DATE: 20160416
